FAERS Safety Report 10483709 (Version 1)
Quarter: 2014Q3

REPORT INFORMATION
  Report Type: Spontaneous
  Country: GB (occurrence: None)
  Receive Date: 20140926
  Receipt Date: 20140926
  Transmission Date: 20150326
  Serious: Yes (Hospitalization)
  Sender: FDA-Public Use
  Company Number: GB-DEXPHARM-20140621

PATIENT
  Age: 64 Year
  Sex: Male

DRUGS (1)
  1. OMEPRAZOLE. [Suspect]
     Active Substance: OMEPRAZOLE
     Dosage: 20 MG, SEP. DOSAGES / INTERVAL: 1 IN 1 DAYS
     Route: 048
     Dates: end: 20140903

REACTIONS (2)
  - Hypomagnesaemia [None]
  - Hypocalcaemia [None]
